FAERS Safety Report 11190858 (Version 1)
Quarter: 2015Q2

REPORT INFORMATION
  Report Type: Report from Study
  Country: HK (occurrence: HK)
  Receive Date: 20150615
  Receipt Date: 20150615
  Transmission Date: 20150821
  Serious: Yes (Other)
  Sender: FDA-Public Use
  Company Number: HK-INCYTE CORPORATION-2015IN002627

PATIENT

DRUGS (1)
  1. JAKAFI [Suspect]
     Active Substance: RUXOLITINIB
     Indication: MYELOFIBROSIS
     Dosage: BID
     Route: 048

REACTIONS (1)
  - Splenic rupture [Recovered/Resolved]

NARRATIVE: CASE EVENT DATE: 2014
